FAERS Safety Report 5672183-7 (Version None)
Quarter: 2008Q1

REPORT INFORMATION
  Report Type: 
  Country: None (occurrence: None)
  Receive Date: 20080319
  Receipt Date: 20080305
  Transmission Date: 20080703
  Serious: Yes (Hospitalization)
  Sender: FDA-Public Use
  Company Number: US-AMGEN-QUU268330

PATIENT
  Sex: Female
  Weight: 1.65 kg

DRUGS (2)
  1. ENBREL [Suspect]
     Indication: RHEUMATOID ARTHRITIS
     Route: 064
     Dates: start: 20010101, end: 20060101
  2. PREDNISONE [Concomitant]
     Route: 064

REACTIONS (3)
  - JAUNDICE NEONATAL [None]
  - PREMATURE BABY [None]
  - SMALL FOR DATES BABY [None]
